FAERS Safety Report 8153567-4 (Version None)
Quarter: 2012Q1

REPORT INFORMATION
  Report Type: 
  Country: None (occurrence: None)
  Receive Date: 20120221
  Receipt Date: 20120213
  Transmission Date: 20120608
  Serious: Yes (Other)
  Sender: FDA-Public Use
  Company Number: ES-B.I. PHARMACEUTICALS,INC./RIDGEFIELD-2012-ES-00056ES

PATIENT
  Age: 74 Year
  Sex: Female

DRUGS (6)
  1. CLORAZEPATE DIPOTASSIUM [Concomitant]
     Dosage: 5 MG
  2. ARTINOVO [Concomitant]
  3. PRADAXA [Suspect]
     Indication: KNEE OPERATION
     Dosage: 110 MG
     Route: 048
     Dates: start: 20111105, end: 20111115
  4. ENALAPRIL MALEATE [Concomitant]
     Dosage: 5 MG
  5. DATOLAN [Concomitant]
  6. ESERTIA [Concomitant]
     Dosage: 15 MG
     Route: 048

REACTIONS (4)
  - NAUSEA [None]
  - MALAISE [None]
  - HEADACHE [None]
  - DIARRHOEA [None]
